FAERS Safety Report 9636302 (Version 1)
Quarter: 2013Q4

REPORT INFORMATION
  Report Type: Spontaneous
  Country: US (occurrence: US)
  Receive Date: 20131021
  Receipt Date: 20131021
  Transmission Date: 20140711
  Serious: Yes (Hospitalization)
  Sender: FDA-Public Use
  Company Number: US-SA-2013SA104232

PATIENT
  Sex: Male

DRUGS (2)
  1. DIABETA [Suspect]
     Route: 065
  2. METFORMIN [Concomitant]

REACTIONS (1)
  - Biliary tract disorder [Unknown]
